FAERS Safety Report 13164932 (Version 5)
Quarter: 2017Q3

REPORT INFORMATION
  Report Type: Spontaneous
  Country: US (occurrence: US)
  Receive Date: 20170130
  Receipt Date: 20170803
  Transmission Date: 20171127
  Serious: Yes (Hospitalization)
  Sender: FDA-Public Use
  Company Number: US-ACTELION-A-US2015-114256

PATIENT
  Age: 74 Year
  Sex: Male

DRUGS (14)
  1. SYNTHROID [Concomitant]
     Active Substance: LEVOTHYROXINE SODIUM
  2. ZYRTEC [Concomitant]
     Active Substance: CETIRIZINE HYDROCHLORIDE
     Dosage: UNK
  3. ASPIRIN. [Concomitant]
     Active Substance: ASPIRIN
     Dosage: UNK
  4. MULTIVITAMIN [Concomitant]
     Active Substance: VITAMINS
     Dosage: UNK
  5. VALSARTAN + HIDROCLOROTIAZIDA [Concomitant]
     Active Substance: HYDROCHLOROTHIAZIDE\VALSARTAN
  6. VALCHLOR [Suspect]
     Active Substance: MECHLORETHAMINE
     Dosage: QD - BID
     Route: 061
     Dates: start: 20170110
  7. VALCHLOR [Suspect]
     Active Substance: MECHLORETHAMINE
     Indication: MYCOSIS FUNGOIDES
     Dosage: UNK, QD
     Route: 061
     Dates: start: 20150207
  8. ASMANEX [Concomitant]
     Active Substance: MOMETASONE FUROATE
     Dosage: UNK
  9. CLOBETASOL [Concomitant]
     Active Substance: CLOBETASOL
     Dosage: UNK
  10. VALSARTAN. [Concomitant]
     Active Substance: VALSARTAN
     Dosage: UNK
  11. FOLIC ACID. [Concomitant]
     Active Substance: FOLIC ACID
     Dosage: UNK
  12. MONTELUKAST [Concomitant]
     Active Substance: MONTELUKAST SODIUM
     Dosage: UNK
  13. METHOTREXATE. [Concomitant]
     Active Substance: METHOTREXATE
     Dosage: UNK
  14. VITAMIN D3 [Concomitant]
     Active Substance: CHOLECALCIFEROL

REACTIONS (10)
  - Application site pruritus [Recovering/Resolving]
  - Blister [Unknown]
  - Rash [Recovering/Resolving]
  - Sepsis [Recovering/Resolving]
  - Application site vesicles [Not Recovered/Not Resolved]
  - Bronchitis [Unknown]
  - Cellulitis [Recovering/Resolving]
  - Application site swelling [Recovering/Resolving]
  - Application site erythema [Recovering/Resolving]
  - Wound [Unknown]

NARRATIVE: CASE EVENT DATE: 20170627
